FAERS Safety Report 25010518 (Version 1)
Quarter: 2025Q1

REPORT INFORMATION
  Report Type: Spontaneous
  Country: CN (occurrence: CN)
  Receive Date: 20250225
  Receipt Date: 20250225
  Transmission Date: 20250409
  Serious: Yes (Hospitalization)
  Sender: BOEHRINGER INGELHEIM
  Company Number: CN-BoehringerIngelheim-2025-BI-011115

PATIENT
  Age: 1 Year
  Sex: Male
  Weight: 10.500 kg

DRUGS (1)
  1. ATROVENT [Suspect]
     Active Substance: IPRATROPIUM BROMIDE
     Indication: Cough
     Dates: start: 20211215, end: 20211217

REACTIONS (3)
  - Headache [Recovered/Resolved]
  - Cough [Recovered/Resolved]
  - Listless [Recovered/Resolved]

NARRATIVE: CASE EVENT DATE: 20211217
